FAERS Safety Report 9096222 (Version 1)
Quarter: 2013Q1

REPORT INFORMATION
  Report Type: Spontaneous
  Country: US (occurrence: US)
  Receive Date: 20130207
  Receipt Date: 20130207
  Transmission Date: 20140127
  Serious: Yes (Other)
  Sender: FDA-Public Use
  Company Number: US-SANOFI-AVENTIS-2013SA010651

PATIENT
  Age: 63 Year
  Sex: 0

DRUGS (1)
  1. PLAVIX [Suspect]
     Indication: CARDIAC OPERATION

REACTIONS (1)
  - Fear of death [Unknown]
